FAERS Safety Report 19011180 (Version 1)
Quarter: 2021Q1

REPORT INFORMATION
  Report Type: Spontaneous
  Country: US (occurrence: US)
  Receive Date: 20210315
  Receipt Date: 20210315
  Transmission Date: 20210420
  Serious: No
  Sender: FDA-Public Use
  Company Number: None

PATIENT
  Age: 69 Year
  Sex: Male
  Weight: 92.25 kg

DRUGS (7)
  1. CAPECITABINE. [Suspect]
     Active Substance: CAPECITABINE
     Indication: RECTAL CANCER
     Dosage: ?          OTHER FREQUENCY:BID M?F;?
     Route: 048
     Dates: start: 20210119
  2. LOMOTIL [Concomitant]
     Active Substance: ATROPINE SULFATE\DIPHENOXYLATE HYDROCHLORIDE
  3. DILTIAZEM. [Concomitant]
     Active Substance: DILTIAZEM
  4. ONDANSETRON [Concomitant]
     Active Substance: ONDANSETRON
  5. PROCHLORPERAZINE. [Concomitant]
     Active Substance: PROCHLORPERAZINE
  6. IBUPROFEN. [Concomitant]
     Active Substance: IBUPROFEN
  7. LIDOCAINE?PRILOCAINE [Concomitant]
     Active Substance: LIDOCAINE\PRILOCAINE

REACTIONS (2)
  - Diarrhoea [None]
  - Neuropathy peripheral [None]

NARRATIVE: CASE EVENT DATE: 20210315
